FAERS Safety Report 4513476-6 (Version None)
Quarter: 2004Q4

REPORT INFORMATION
  Report Type: 
  Country: None (occurrence: None)
  Receive Date: 20041130
  Receipt Date: 20041122
  Transmission Date: 20050328
  Serious: Yes (Hospitalization)
  Sender: FDA-Public Use
  Company Number: 200414394FR

PATIENT
  Age: 75 Year
  Sex: Female
  Weight: 64 kg

DRUGS (4)
  1. FLAGYL [Suspect]
     Route: 048
     Dates: start: 20040901, end: 20040920
  2. CIFLOX [Suspect]
     Route: 048
     Dates: start: 20040901, end: 20040920
  3. MOVICOL [Concomitant]
     Route: 048
  4. STILNOX [Concomitant]
     Route: 048

REACTIONS (5)
  - DRUG INTOLERANCE [None]
  - HYPERHIDROSIS [None]
  - MALAISE [None]
  - NAUSEA [None]
  - SYNCOPE VASOVAGAL [None]
